FAERS Safety Report 7292469-2 (Version None)
Quarter: 2011Q1

REPORT INFORMATION
  Report Type: 
  Country: None (occurrence: None)
  Receive Date: 20110215
  Receipt Date: 20110211
  Transmission Date: 20110831
  Serious: Yes (Death, Other)
  Sender: FDA-Public Use
  Company Number: US-PFIZER INC-2010171539

PATIENT
  Sex: Female

DRUGS (6)
  1. CHANTIX [Suspect]
     Indication: SMOKING CESSATION THERAPY
     Dosage: 0.5MG/1MG
     Dates: start: 20071101, end: 20080101
  2. DARVOCET-N 100 [Concomitant]
     Indication: PAIN
     Dosage: UNK
     Dates: start: 20000101, end: 20080101
  3. HYDROCODONE [Concomitant]
     Indication: PAIN
     Dosage: UNK
     Dates: start: 20000101, end: 20080101
  4. SYNTHROID [Concomitant]
     Indication: HYPOTHYROIDISM
     Dosage: UNK
     Dates: start: 20000101, end: 20080101
  5. SKELAXIN [Concomitant]
     Indication: PAIN
     Dosage: UNK
     Dates: start: 20050101, end: 20080101
  6. PLENDIL [Concomitant]
     Indication: CHEST PAIN
     Dosage: UNK
     Dates: start: 20000101, end: 20080101

REACTIONS (7)
  - AGGRESSION [None]
  - COMPLETED SUICIDE [None]
  - PARANOIA [None]
  - DEPRESSION [None]
  - AGITATION [None]
  - MOOD SWINGS [None]
  - ANXIETY [None]
